FAERS Safety Report 20095852 (Version 1)
Quarter: 2021Q4

REPORT INFORMATION
  Report Type: Spontaneous
  Country: US (occurrence: US)
  Receive Date: 20211122
  Receipt Date: 20211122
  Transmission Date: 20220303
  Serious: Yes (Other)
  Sender: FDA-Public Use
  Company Number: US-GLAXOSMITHKLINE-US2021GSK239714

PATIENT
  Sex: Female

DRUGS (8)
  1. ZANTAC [Suspect]
     Active Substance: RANITIDINE HYDROCHLORIDE
     Indication: Colitis
     Dosage: 75 MG OVER THE COUNTER
     Route: 065
     Dates: start: 199701, end: 201601
  2. ZANTAC [Suspect]
     Active Substance: RANITIDINE HYDROCHLORIDE
     Dosage: 150 MG, QD
     Route: 065
     Dates: start: 199701, end: 201601
  3. ZANTAC [Suspect]
     Active Substance: RANITIDINE HYDROCHLORIDE
     Indication: Colitis
     Dosage: 75 MG OVER THE COUNTER
     Route: 065
     Dates: start: 199701, end: 201601
  4. ZANTAC [Suspect]
     Active Substance: RANITIDINE HYDROCHLORIDE
     Dosage: 150 MG, QD
     Route: 065
     Dates: start: 199701, end: 201601
  5. RANITIDINE [Suspect]
     Active Substance: RANITIDINE
     Indication: Colitis
     Dosage: 150 MG PRESCRIPTION
     Route: 065
     Dates: start: 201201, end: 201601
  6. RANITIDINE [Suspect]
     Active Substance: RANITIDINE
     Dosage: 300 MG, QD
     Route: 065
     Dates: start: 201201, end: 201601
  7. RANITIDINE [Suspect]
     Active Substance: RANITIDINE
     Indication: Colitis
     Dosage: 150 MG PRESCRIPTION
     Route: 065
     Dates: start: 201201, end: 201601
  8. RANITIDINE [Suspect]
     Active Substance: RANITIDINE
     Dosage: 300 MG, QD
     Route: 065
     Dates: start: 201201, end: 201601

REACTIONS (1)
  - Breast cancer [Unknown]
